FAERS Safety Report 4971439-0 (Version None)
Quarter: 2006Q2

REPORT INFORMATION
  Report Type: 
  Country: None (occurrence: None)
  Receive Date: 20060413
  Receipt Date: 20060406
  Transmission Date: 20061013
  Serious: Yes (Hospitalization)
  Sender: FDA-Public Use
  Company Number: PHHO2006GB05664

PATIENT
  Age: 31 Year
  Sex: Female
  Weight: 53 kg

DRUGS (1)
  1. TEGASEROD [Suspect]
     Indication: DYSPEPSIA
     Dosage: 6 MG, BID
     Route: 048
     Dates: start: 20050609

REACTIONS (4)
  - ABDOMINAL PAIN LOWER [None]
  - ABDOMINAL PAIN UPPER [None]
  - CONSTIPATION [None]
  - DYSPEPSIA [None]
